FAERS Safety Report 6604954-4 (Version None)
Quarter: 2010Q1

REPORT INFORMATION
  Report Type: 
  Country: None (occurrence: None)
  Receive Date: 20100226
  Receipt Date: 20100218
  Transmission Date: 20100710
  Serious: Yes (Hospitalization, Other)
  Sender: FDA-Public Use
  Company Number: ES-ABBOTT-10P-144-0627384-00

PATIENT
  Age: 81 Year
  Sex: Female

DRUGS (2)
  1. DEPAKENE [Suspect]
     Indication: EPILEPSY
     Route: 048
     Dates: start: 20090905, end: 20090911
  2. DEPAKENE [Concomitant]
     Indication: DRUG USE FOR UNKNOWN INDICATION
     Dates: start: 20000101, end: 20090905

REACTIONS (5)
  - DECREASED APPETITE [None]
  - FATIGUE [None]
  - HEADACHE [None]
  - MUSCULAR WEAKNESS [None]
  - SEDATION [None]
